FAERS Safety Report 12393147 (Version 1)
Quarter: 2016Q2

REPORT INFORMATION
  Report Type: Spontaneous
  Country: US (occurrence: None)
  Receive Date: 20160520
  Receipt Date: 20160520
  Transmission Date: 20160815
  Serious: Yes (Other)
  Sender: FDA-Public Use
  Company Number: None

PATIENT
  Age: 49 Year
  Sex: Female
  Weight: 45.36 kg

DRUGS (6)
  1. BOTOX [Suspect]
     Active Substance: ONABOTULINUMTOXINA
  2. MULTI VITAMIN [Concomitant]
     Active Substance: VITAMINS
  3. BREAST IMPLANT [Suspect]
     Active Substance: DEVICE
  4. XANAX [Concomitant]
     Active Substance: ALPRAZOLAM
  5. PAIN MEDS [Concomitant]
     Active Substance: UNSPECIFIED INGREDIENT
  6. VITAMIN D [Concomitant]
     Active Substance: CHOLECALCIFEROL

REACTIONS (10)
  - Respiratory disorder [None]
  - Cough [None]
  - Pyrexia [None]
  - Cerebrovascular accident [None]
  - Retching [None]
  - Malaise [None]
  - Device breakage [None]
  - Abdominal pain upper [None]
  - Loss of consciousness [None]
  - Dyspnoea [None]
